FAERS Safety Report 20197049 (Version 1)
Quarter: 2021Q4

REPORT INFORMATION
  Report Type: Spontaneous
  Country: JP (occurrence: JP)
  Receive Date: 20211217
  Receipt Date: 20211217
  Transmission Date: 20220304
  Serious: Yes (Other)
  Sender: FDA-Public Use
  Company Number: JP-SUN PHARMACEUTICAL INDUSTRIES LTD-2021R1-320963

PATIENT
  Age: 68 Year
  Sex: Female

DRUGS (3)
  1. DEXAMETHASONE [Suspect]
     Active Substance: DEXAMETHASONE
     Indication: Erythema
     Dosage: UNK
     Route: 065
  2. EPINASTINE [Suspect]
     Active Substance: EPINASTINE
     Indication: Erythema
     Dosage: UNK
     Route: 065
  3. SUPLATAST TOSILATE [Suspect]
     Active Substance: SUPLATAST TOSILATE
     Indication: Erythema
     Dosage: UNK
     Route: 065

REACTIONS (1)
  - Drug resistance [Unknown]
